FAERS Safety Report 4409872-8 (Version None)
Quarter: 2004Q3

REPORT INFORMATION
  Report Type: 
  Country: None (occurrence: None)
  Receive Date: 20040726
  Receipt Date: 20040713
  Transmission Date: 20050211
  Serious: Yes (Hospitalization)
  Sender: FDA-Public Use
  Company Number: NL-JNJFOC-20040703308

PATIENT
  Age: 62 Year
  Sex: Male

DRUGS (5)
  1. REMICADE [Suspect]
     Indication: RHEUMATOID ARTHRITIS
     Dosage: 270 MG, INTRAVENOUS
     Route: 042
     Dates: start: 20011011, end: 20020116
  2. AZATHIOPRINE [Concomitant]
  3. NAPROXENE [Concomitant]
  4. HYZAAR [Concomitant]
  5. EUCARDIC (CARVEDILOL) [Concomitant]

REACTIONS (1)
  - TUBERCULOSIS [None]
